FAERS Safety Report 6150051-4 (Version None)
Quarter: 2009Q2

REPORT INFORMATION
  Report Type: 
  Country: None (occurrence: None)
  Receive Date: 20090407
  Receipt Date: 20090330
  Transmission Date: 20091009
  Serious: Yes (Other)
  Sender: FDA-Public Use
  Company Number: ADE2009-0520

PATIENT
  Age: 55 Year
  Sex: Female

DRUGS (1)
  1. FLUOXETINE [Suspect]

REACTIONS (1)
  - PHARYNGEAL HAEMORRHAGE [None]
